FAERS Safety Report 24683113 (Version 1)
Quarter: 2024Q4

REPORT INFORMATION
  Report Type: Spontaneous
  Country: US (occurrence: US)
  Receive Date: 20241201
  Receipt Date: 20241201
  Transmission Date: 20250114
  Serious: No
  Sender: BRISTOL-MYERS SQUIBB COMPANY
  Company Number: US-BRISTOL-MYERS SQUIBB COMPANY-2024-186916

PATIENT
  Sex: Female

DRUGS (1)
  1. REPOTRECTINIB [Suspect]
     Active Substance: REPOTRECTINIB
     Indication: Product used for unknown indication

REACTIONS (7)
  - Dizziness [Unknown]
  - Taste disorder [Unknown]
  - Paraesthesia [Unknown]
  - Acne [Unknown]
  - Skin ulcer [Unknown]
  - Disturbance in attention [Unknown]
  - Impaired healing [Unknown]
